FAERS Safety Report 13716661 (Version 1)
Quarter: 2017Q3

REPORT INFORMATION
  Report Type: Spontaneous
  Country: ZA (occurrence: ZA)
  Receive Date: 20170705
  Receipt Date: 20170705
  Transmission Date: 20171127
  Serious: No
  Sender: FDA-Public Use
  Company Number: ZA-LUPIN PHARMACEUTICALS INC.-2016-03562

PATIENT
  Age: 57 Year
  Sex: Female

DRUGS (4)
  1. CALCIFEROL 50000 [Concomitant]
     Indication: VITAMIN SUPPLEMENTATION
     Dosage: UNK UNK,AS DIRECTED,
     Route: 048
     Dates: start: 2011
  2. PREXUM PLUS 4/1.25 [Concomitant]
     Indication: HYPERTENSION
     Dosage: UNK UNK,UNK,
     Route: 048
     Dates: start: 2011
  3. FELODIPINE-HEXAL [Concomitant]
     Indication: HYPERTENSION
     Dosage: 10 MG
     Route: 048
     Dates: start: 2011
  4. SIMVACOR 20 MG [Suspect]
     Active Substance: SIMVASTATIN
     Indication: BLOOD CHOLESTEROL ABNORMAL
     Dosage: 20 MG,QD,
     Route: 048
     Dates: start: 201601, end: 201605

REACTIONS (1)
  - Hypersensitivity [Recovered/Resolved]

NARRATIVE: CASE EVENT DATE: 201605
